FAERS Safety Report 24443708 (Version 1)
Quarter: 2024Q4

REPORT INFORMATION
  Report Type: Spontaneous
  Country: BY (occurrence: BY)
  Receive Date: 20241016
  Receipt Date: 20241016
  Transmission Date: 20250115
  Serious: Yes (Death, Life-Threatening)
  Sender: JOHNSON AND JOHNSON
  Company Number: BY-JNJFOC-20241042729

PATIENT
  Sex: Male
  Weight: 55 kg

DRUGS (12)
  1. SIRTURO [Suspect]
     Active Substance: BEDAQUILINE FUMARATE
     Indication: Tuberculosis
     Route: 048
     Dates: start: 20240418, end: 20240710
  2. SIRTURO [Suspect]
     Active Substance: BEDAQUILINE FUMARATE
     Route: 048
     Dates: start: 20240418, end: 20240710
  3. LINEZOLID [Suspect]
     Active Substance: LINEZOLID
     Indication: Tuberculosis
     Route: 048
     Dates: start: 20240418, end: 20240710
  4. CLOFAZIMINE [Suspect]
     Active Substance: CLOFAZIMINE
     Indication: Tuberculosis
     Route: 048
     Dates: start: 20240604, end: 20240710
  5. MOXIFLOXACIN [Suspect]
     Active Substance: MOXIFLOXACIN
     Indication: Tuberculosis
     Route: 048
     Dates: start: 20240418, end: 20240710
  6. PRETOMANID [Suspect]
     Active Substance: PRETOMANID
     Indication: Tuberculosis
     Route: 048
     Dates: start: 20240418, end: 20240710
  7. BISOPROLOL [Concomitant]
     Active Substance: BISOPROLOL\BISOPROLOL FUMARATE
     Indication: Hypertension
     Dosage: 2,5 MGX LR/HOUR
     Route: 065
     Dates: start: 20240416, end: 20240710
  8. RAMIPRIL [Concomitant]
     Active Substance: RAMIPRIL
     Indication: Hypertension
     Dosage: 2, 5 MG MORNING
     Route: 065
     Dates: start: 20240416, end: 20240710
  9. TRAMADOL [Concomitant]
     Active Substance: TRAMADOL
     Indication: Neoplasm malignant
     Route: 048
     Dates: start: 20240702, end: 20240710
  10. TRAMADOL [Concomitant]
     Active Substance: TRAMADOL
     Indication: Analgesic therapy
  11. FURAZOLIDONE [Concomitant]
     Active Substance: FURAZOLIDONE
     Indication: Hypoalbuminaemia
     Route: 048
     Dates: start: 20240624, end: 20240710
  12. RINGERS SOLUTION [Concomitant]
     Active Substance: CALCIUM CHLORIDE\POTASSIUM CHLORIDE\SODIUM CHLORIDE
     Indication: Neoplasm malignant
     Route: 041
     Dates: start: 20240624, end: 20240710

REACTIONS (2)
  - Tongue neoplasm malignant stage unspecified [Fatal]
  - Acute kidney injury [Not Recovered/Not Resolved]

NARRATIVE: CASE EVENT DATE: 20240426
